FAERS Safety Report 8975054 (Version 2)
Quarter: 2014Q1

REPORT INFORMATION
  Report Type: Report from Study
  Country: CA (occurrence: CA)
  Receive Date: 20121219
  Receipt Date: 20140318
  Transmission Date: 20141002
  Serious: Yes (Death, Other)
  Sender: FDA-Public Use
  Company Number: PHHY2012CA116844

PATIENT
  Age: 88 Year
  Sex: Female

DRUGS (21)
  1. ZOMETA [Suspect]
     Indication: BREAST CANCER METASTATIC
     Dosage: 3.3 MG, EVERY 4 WEEKS
     Route: 042
     Dates: start: 20120807
  2. ZOMETA [Suspect]
     Indication: METASTASES TO BONE
     Dosage: 3.3 MG, EVERY 4 WEEKS
     Route: 042
     Dates: start: 20120810, end: 20121005
  3. SENOKOT [Concomitant]
     Dosage: 8.6 MG, QH PRN
     Route: 048
  4. MORPHINE [Concomitant]
     Dosage: 2.5 - 10 MG, Q3H PRN
     Route: 048
  5. MORPHINE [Concomitant]
     Dosage: 2.5 - 5 MG, Q3H
     Route: 058
  6. LACTULOSE [Concomitant]
     Dosage: 30 ML, BID PRN
     Route: 048
  7. TYLENOL [Concomitant]
     Dosage: 1 - 2 DF, Q6H
     Route: 048
  8. MOISTUREL [Concomitant]
     Dosage: UNK UKN, BID PRN
  9. BACID [Concomitant]
     Dosage: 1 DF, TID
     Route: 048
  10. RITALIN [Concomitant]
     Dosage: 7.5 MG, DAILY
     Route: 048
  11. TRAZODONE [Concomitant]
     Dosage: 150 - 200 MG, 9 HS
     Route: 048
  12. ONDASETRON [Concomitant]
     Dosage: 4 MG, Q6H
     Route: 048
  13. PROCHLORPERAZINE [Concomitant]
     Dosage: 5 - 10 MG, QID PRN
     Route: 048
  14. VANCOMYCIN [Concomitant]
     Dosage: 125 MG, Q6H
     Route: 048
  15. HALOPERIDOL [Concomitant]
     Dosage: 1 MG, DAILY
     Route: 048
  16. PANTOPRAZOLE [Concomitant]
     Dosage: 40 MG, DAILY
     Route: 048
  17. LEVOTHYROXINE [Concomitant]
     Dosage: 75 MG, DAILY
     Route: 048
  18. FULVESTRANT [Concomitant]
     Dosage: 250 MG, MONTHLY
     Route: 030
     Dates: start: 20101119, end: 20120510
  19. FULVESTRANT [Concomitant]
     Dosage: 500 MG, MONTHLY
     Route: 030
     Dates: start: 20120713, end: 20121005
  20. PAMIDRONATE [Concomitant]
     Dosage: 90 MG, MONTHLY
     Route: 042
     Dates: start: 20110630, end: 20120713
  21. PHENOTHIAZINE [Concomitant]

REACTIONS (3)
  - Breast cancer [Fatal]
  - General physical health deterioration [Unknown]
  - Somnolence [Unknown]
